FAERS Safety Report 5809459-6 (Version None)
Quarter: 2008Q3

REPORT INFORMATION
  Report Type: 
  Country: None (occurrence: None)
  Receive Date: 20080715
  Receipt Date: 20080708
  Transmission Date: 20090109
  Serious: Yes (Hospitalization)
  Sender: FDA-Public Use
  Company Number: FR-JNJFOC-20080701541

PATIENT
  Age: 88 Year
  Sex: Male

DRUGS (11)
  1. RISPERDAL [Suspect]
     Indication: DRUG USE FOR UNKNOWN INDICATION
     Route: 048
  2. TIAPRIDAL [Suspect]
     Indication: DRUG USE FOR UNKNOWN INDICATION
  3. RIVOTRIL [Suspect]
     Indication: DRUG USE FOR UNKNOWN INDICATION
  4. IMOVANE [Suspect]
     Indication: DRUG USE FOR UNKNOWN INDICATION
  5. POLERY [Suspect]
     Indication: DRUG USE FOR UNKNOWN INDICATION
  6. MEMANTINE HCL [Concomitant]
  7. AMLOR [Concomitant]
  8. COVERSYL [Concomitant]
  9. CLAMOXYL [Concomitant]
  10. SOLUPRED [Concomitant]
  11. KARDEGIC [Concomitant]

REACTIONS (2)
  - PNEUMONIA ASPIRATION [None]
  - SOMNOLENCE [None]
